FAERS Safety Report 8788178 (Version 1)
Quarter: 2012Q4

REPORT INFORMATION
  Report Type: 
  Country: US (occurrence: US)
  Receive Date: 20120914
  Receipt Date: 20120914
  Transmission Date: 20130627
  Serious: No
  Sender: FDA-Public Use
  Company Number: US-VERTEX PHARMACEUTICAL INC.-AE-2012-010160

PATIENT

DRUGS (9)
  1. INCIVEK [Suspect]
     Indication: HEPATITIS C
     Route: 048
     Dates: start: 20120625
  2. PEGASYS [Concomitant]
     Indication: HEPATITIS C
     Route: 058
     Dates: start: 20120625
  3. RIBAVIRIN [Concomitant]
     Indication: HEPATITIS C
     Route: 048
     Dates: start: 20120625
  4. MULTIVITAMIN [Concomitant]
     Route: 048
  5. VITAMIN B [Concomitant]
     Route: 048
  6. OMEGA 3-6-9 [Concomitant]
     Route: 048
  7. MYLANTA SUS [Concomitant]
     Route: 048
  8. IRON TAB [Concomitant]
  9. HYDROXYZ HCL [Concomitant]

REACTIONS (8)
  - Blood iron decreased [Unknown]
  - Skin lesion [Unknown]
  - Decreased appetite [Unknown]
  - Dyspepsia [Unknown]
  - Chills [Unknown]
  - Nausea [Unknown]
  - Urticaria [Unknown]
  - Pruritus [Unknown]
